FAERS Safety Report 5280526-1 (Version None)
Quarter: 2007Q1

REPORT INFORMATION
  Report Type: 
  Country: None (occurrence: None)
  Receive Date: 20070329
  Receipt Date: 20070320
  Transmission Date: 20070707
  Serious: Yes (Other)
  Sender: FDA-Public Use
  Company Number: GB-JNJFOC-20070303151

PATIENT
  Age: 73 Year

DRUGS (2)
  1. RISPERDAL [Suspect]
     Route: 065
  2. RISPERDAL [Suspect]
     Indication: DRUG USE FOR UNKNOWN INDICATION
     Route: 065

REACTIONS (8)
  - BALANCE DISORDER [None]
  - BLOOD GLUCOSE INCREASED [None]
  - EPISTAXIS [None]
  - GAIT DISTURBANCE [None]
  - MALAISE [None]
  - NASAL CONGESTION [None]
  - SLEEP DISORDER [None]
  - URINARY TRACT INFECTION [None]
